FAERS Safety Report 5045580-0 (Version None)
Quarter: 2006Q3

REPORT INFORMATION
  Report Type: 
  Country: None (occurrence: None)
  Receive Date: 20060707
  Receipt Date: 20060629
  Transmission Date: 20061208
  Serious: Yes (Hospitalization)
  Sender: FDA-Public Use
  Company Number: JP-ROCHE-453330

PATIENT
  Age: 68 Year
  Sex: Male

DRUGS (3)
  1. HORIZON [Suspect]
     Indication: INSOMNIA
     Dosage: TAKEN WHEN NEEDED
     Route: 048
     Dates: start: 20010615, end: 20060620
  2. LIPITOR [Suspect]
     Indication: HYPERLIPIDAEMIA
     Route: 048
     Dates: start: 20060315, end: 20060615
  3. BEPRICOR [Suspect]
     Indication: ARRHYTHMIA
     Route: 048
     Dates: start: 20010615, end: 20060615

REACTIONS (2)
  - INTERSTITIAL LUNG DISEASE [None]
  - STOMACH DISCOMFORT [None]
